FAERS Safety Report 15880488 (Version 1)
Quarter: 2019Q1

REPORT INFORMATION
  Report Type: Spontaneous
  Country: US (occurrence: US)
  Receive Date: 20190128
  Receipt Date: 20190128
  Transmission Date: 20190417
  Serious: Yes (Hospitalization)
  Sender: FDA-Public Use
  Company Number: None

PATIENT
  Age: 80 Year
  Sex: Female
  Weight: 47.6 kg

DRUGS (1)
  1. NOCDURNA [Suspect]
     Active Substance: DESMOPRESSIN ACETATE
     Indication: NOCTURIA
     Route: 060
     Dates: start: 20190118, end: 20190126

REACTIONS (2)
  - Hyponatraemia [None]
  - Mental status changes [None]

NARRATIVE: CASE EVENT DATE: 20190127
